FAERS Safety Report 8226472-2 (Version None)
Quarter: 2012Q1

REPORT INFORMATION
  Report Type: 
  Country: None (occurrence: None)
  Receive Date: 20120322
  Receipt Date: 20120313
  Transmission Date: 20120608
  Serious: Yes (Hospitalization)
  Sender: FDA-Public Use
  Company Number: IT-BRISTOL-MYERS SQUIBB COMPANY-16451957

PATIENT
  Age: 57 Year
  Sex: Male
  Weight: 94 kg

DRUGS (14)
  1. ESKIM [Concomitant]
     Dates: start: 20100101
  2. RABEPRAZOLE SODIUM [Concomitant]
     Dates: start: 20111105
  3. PEMETREXED DISODIUM [Suspect]
     Indication: NON-SMALL CELL LUNG CANCER
     Dosage: LAST DOSE: 15-FEB-2012 INTP:7MAR12,RESTARTS:16MAR12
     Route: 042
     Dates: start: 20111214
  4. RAMIPRIL [Concomitant]
     Dates: start: 20100101
  5. WARFARIN SODIUM [Concomitant]
     Dates: start: 20100101
  6. ARIXTRA [Concomitant]
     Dates: start: 20111212
  7. MYCOSTATIN [Concomitant]
     Dates: start: 20111215
  8. FOLIC ACID [Concomitant]
     Dates: start: 20111019
  9. KEPPRA [Concomitant]
     Dates: start: 20100101
  10. VITAMIN B-12 [Concomitant]
     Dates: start: 20111017
  11. ASPIRIN [Concomitant]
     Dates: start: 20100101
  12. CISPLATIN [Suspect]
     Indication: NON-SMALL CELL LUNG CANCER
     Dosage: LAST DOSE: 15-FEB-2012
     Route: 042
     Dates: start: 20111214
  13. ATORVASTATIN CALCIUM [Concomitant]
     Dates: start: 20100101
  14. DEXAMETHASONE [Concomitant]
     Dates: end: 20120216

REACTIONS (5)
  - PYREXIA [None]
  - BLOOD CREATININE INCREASED [None]
  - HYPOTENSION [None]
  - FATIGUE [None]
  - DIZZINESS [None]
